FAERS Safety Report 18846906 (Version 1)
Quarter: 2021Q1

REPORT INFORMATION
  Report Type: Spontaneous
  Country: JP (occurrence: JP)
  Receive Date: 20210204
  Receipt Date: 20210204
  Transmission Date: 20210419
  Serious: Yes (Hospitalization, Other)
  Sender: FDA-Public Use
  Company Number: JP-PFIZER INC-2021082515

PATIENT
  Age: 49 Year
  Sex: Male
  Weight: 76.6 kg

DRUGS (25)
  1. SOL MEDROL [Concomitant]
     Active Substance: METHYLPREDNISOLONE SODIUM SUCCINATE
     Dosage: UNK
  2. FUNGARD [Concomitant]
     Dosage: UNK
  3. RINDERON [BETAMETHASONE SODIUM PHOSPHATE] [Concomitant]
     Active Substance: BETAMETHASONE SODIUM PHOSPHATE
     Dosage: UNK
  4. ALENDRONATE TOWA [Concomitant]
     Active Substance: ALENDRONATE SODIUM
     Dosage: UNK
  5. METHOTREXATE. [Suspect]
     Active Substance: METHOTREXATE
     Indication: ACUTE LYMPHOCYTIC LEUKAEMIA
     Dosage: 1830 MG, DAILY
     Route: 041
     Dates: start: 20201203, end: 20201203
  6. CYLOCIDE [Concomitant]
     Active Substance: CYTARABINE
     Dosage: UNK
  7. BEZAFIBRATE NICHIIKO [Concomitant]
     Dosage: UNK
  8. SENNOSIDE TAKEDA TEVA [Concomitant]
     Dosage: UNK
  9. MAGNESIUM OXIDE MOCHIDA [Concomitant]
     Dosage: UNK
  10. GRANISETRON MEIJI [Concomitant]
     Dosage: UNK
  11. DIAMOX SEQUELS [Concomitant]
     Active Substance: ACETAZOLAMIDE
     Dosage: UNK
  12. MEYLON [Concomitant]
     Active Substance: SODIUM BICARBONATE
     Dosage: UNK
  13. DECADRON [Concomitant]
     Active Substance: DEXAMETHASONE
     Dosage: UNK
  14. LEUCOVORIN [CALCIUM FOLINATE] [Concomitant]
     Active Substance: LEUCOVORIN
     Dosage: UNK
  15. SOLDEM 1 [Concomitant]
     Active Substance: DEXTROSE\SODIUM CHLORIDE\SODIUM LACTATE
     Dosage: UNK
  16. ETHYL ICOSAPENTATE SAWAI [Concomitant]
     Dosage: UNK
  17. HACHIAZULE [SODIUM BICARBONATE;SODIUM GUALENATE] [Concomitant]
     Dosage: UNK
  18. OLANZAPINE OD MEIJI [Concomitant]
     Dosage: UNK
  19. EMEND [Concomitant]
     Active Substance: APREPITANT
     Dosage: UNK
  20. MAXALT [Concomitant]
     Active Substance: RIZATRIPTAN BENZOATE
     Dosage: UNK
  21. METHOTREXATE 50MG [Suspect]
     Active Substance: METHOTREXATE
     Indication: ACUTE LYMPHOCYTIC LEUKAEMIA
     Dosage: 15 MG, DAILY
     Route: 028
     Dates: start: 20201203, end: 20201203
  22. CYLOCIDE?N [Concomitant]
     Dosage: UNK
  23. ISOTONIC SODIUM CHLORIDE SOLUTION [Concomitant]
     Active Substance: SODIUM CHLORIDE
     Dosage: UNK
  24. POLAPREZINC SAWAI [Concomitant]
     Dosage: UNK
  25. HIRUDOID [Concomitant]
     Active Substance: GLYCOSAMINOGLYCANS
     Dosage: UNK

REACTIONS (7)
  - Renal impairment [Not Recovered/Not Resolved]
  - Off label use [Unknown]
  - Oedema [Unknown]
  - Product use issue [Unknown]
  - Blood creatinine increased [Unknown]
  - Weight increased [Unknown]
  - Altered state of consciousness [Unknown]

NARRATIVE: CASE EVENT DATE: 20201203
